FAERS Safety Report 16008982 (Version 1)
Quarter: 2019Q1

REPORT INFORMATION
  Report Type: Other
  Country: US (occurrence: US)
  Receive Date: 20190226
  Receipt Date: 20190226
  Transmission Date: 20190418
  Serious: Yes (Life-Threatening, Hospitalization, Other)
  Sender: FDA-Public Use
  Company Number: US-C B FLEET CO INC-201902-US-000450

PATIENT
  Age: 13 Month
  Sex: Male

DRUGS (1)
  1. ACETAMINOPHEN. [Suspect]
     Active Substance: ACETAMINOPHEN
     Indication: PYREXIA
     Dosage: 3 DOSES AT HOME OVER 3 DAYS PRIOR TO ADMISSION AND 2 DOSES IN THE HOSPITAL OVER THE FIRST DAY OF ADM
     Route: 048

REACTIONS (8)
  - Aspartate aminotransferase increased [Recovering/Resolving]
  - Activated partial thromboplastin time abnormal [Unknown]
  - Leukopenia [Unknown]
  - Thrombocytopenia [Unknown]
  - Hepatic fibrosis [Unknown]
  - Alanine aminotransferase increased [Recovering/Resolving]
  - Hepatosplenomegaly [Unknown]
  - Alpha 1 foetoprotein increased [Recovering/Resolving]
